FAERS Safety Report 8152261-3 (Version None)
Quarter: 2012Q1

REPORT INFORMATION
  Report Type: 
  Country: None (occurrence: None)
  Receive Date: 20120221
  Receipt Date: 20120213
  Transmission Date: 20120608
  Serious: Yes (Other)
  Sender: FDA-Public Use
  Company Number: US-BAYER-2011-036412

PATIENT
  Age: 29 Year
  Sex: Female
  Weight: 52.154 kg

DRUGS (6)
  1. SEASONIQUE [Concomitant]
  2. ALBUTEROL [Concomitant]
     Dosage: UNK
     Route: 048
     Dates: start: 19860101
  3. NEXIUM [Concomitant]
  4. WELLBUTRIN [Concomitant]
  5. ACIPHEX [Concomitant]
  6. YASMIN [Suspect]
     Dosage: UNK
     Dates: start: 20050101, end: 20090101

REACTIONS (8)
  - BILIARY COLIC [None]
  - PAIN [None]
  - CHOLELITHIASIS [None]
  - CHOLECYSTITIS CHRONIC [None]
  - GALLBLADDER DISORDER [None]
  - EMOTIONAL DISTRESS [None]
  - ANXIETY [None]
  - GENERAL PHYSICAL HEALTH DETERIORATION [None]
